FAERS Safety Report 24641940 (Version 1)
Quarter: 2024Q4

REPORT INFORMATION
  Report Type: Spontaneous
  Country: US (occurrence: None)
  Receive Date: 20241119
  Receipt Date: 20241119
  Transmission Date: 20250115
  Serious: No
  Sender: Public
  Company Number: None

PATIENT
  Age: 25 Year
  Sex: Female
  Weight: 71.1 kg

DRUGS (2)
  1. VICKS SINEX SEVERE MOISTURIZING ULTRA FINE MIST [Suspect]
     Active Substance: OXYMETAZOLINE HYDROCHLORIDE
     Indication: Rhinorrhoea
     Dosage: FREQUENCY : AS NEEDED;?
     Route: 055
     Dates: start: 20240915, end: 20241016
  2. UNSPECIFIED INGREDIENT [Concomitant]
     Active Substance: UNSPECIFIED INGREDIENT

REACTIONS (5)
  - Product use issue [None]
  - Nausea [None]
  - Heart rate decreased [None]
  - Feeling abnormal [None]
  - Nightmare [None]

NARRATIVE: CASE EVENT DATE: 20241015
